FAERS Safety Report 17249625 (Version 2)
Quarter: 2020Q1

REPORT INFORMATION
  Report Type: Report from Study
  Country: KR (occurrence: KR)
  Receive Date: 20200108
  Receipt Date: 20200114
  Transmission Date: 20200409
  Serious: Yes (Hospitalization)
  Sender: FDA-Public Use
  Company Number: KR-CELLTRION INC.-2020KR017560

PATIENT

DRUGS (8)
  1. GENEXOL [PACLITAXEL] [Suspect]
     Active Substance: PACLITAXEL
     Dosage: 128 MG
     Route: 042
     Dates: start: 20190425, end: 20191028
  2. GENEXOL [PACLITAXEL] [Suspect]
     Active Substance: PACLITAXEL
     Dosage: 112 MG
     Route: 042
     Dates: start: 20191118, end: 20191223
  3. GENEXOL [PACLITAXEL] [Suspect]
     Active Substance: PACLITAXEL
     Indication: PRODUCT USED FOR UNKNOWN INDICATION
     Dosage: 121.6 MG
     Route: 042
     Dates: start: 20190314, end: 20190418
  4. HERZUMA [Suspect]
     Active Substance: TRASTUZUMAB-PKRB
     Dosage: 96.4 MG
     Route: 042
     Dates: start: 20190321, end: 20190418
  5. HERZUMA [Suspect]
     Active Substance: TRASTUZUMAB-PKRB
     Dosage: 107.6 MG
     Route: 042
     Dates: start: 20190425, end: 20191230
  6. HERZUMA [Suspect]
     Active Substance: TRASTUZUMAB-PKRB
     Dosage: 192.8 MG
     Route: 042
     Dates: start: 20190314, end: 20190314
  7. CYRAMZA [Suspect]
     Active Substance: RAMUCIRUMAB
     Dosage: 430.4 MG
     Route: 042
     Dates: start: 20190502, end: 20191223
  8. CYRAMZA [Suspect]
     Active Substance: RAMUCIRUMAB
     Indication: PRODUCT USED FOR UNKNOWN INDICATION
     Dosage: 385.6 MG
     Route: 042
     Dates: start: 20190314, end: 20190418

REACTIONS (2)
  - Disease progression [Unknown]
  - Upper gastrointestinal haemorrhage [Not Recovered/Not Resolved]

NARRATIVE: CASE EVENT DATE: 20200103
